FAERS Safety Report 10140898 (Version 3)
Quarter: 2014Q2

REPORT INFORMATION
  Report Type: Spontaneous
  Country: CA (occurrence: CA)
  Receive Date: 20140429
  Receipt Date: 20140530
  Transmission Date: 20141212
  Serious: Yes (Life-Threatening, Disabling, Other)
  Sender: FDA-Public Use
  Company Number: CA-TAKEDA-2014TUS003284

PATIENT
  Age: 39 Year
  Sex: Male
  Weight: 68.27 kg

DRUGS (4)
  1. DEXILANT [Suspect]
     Dosage: 60 MG, QD
     Route: 048
     Dates: start: 20120908, end: 20130114
  2. SYMBICORT [Concomitant]
     Dosage: 2 PUFFS 2X DAILY + 1 PUFF/96 HRS AS NEEDED
  3. SYNTHROID [Concomitant]
     Dosage: 0.112 MG, QD
     Route: 048
  4. VENTOLIN HFA [Concomitant]
     Dosage: 100 MCG 1-2 PUFFS 4X DAILY

REACTIONS (3)
  - Amnesia [Recovered/Resolved]
  - Somnambulism [Recovered/Resolved]
  - Headache [Recovered/Resolved]
